FAERS Safety Report 5205070-9 (Version None)
Quarter: 2007Q1

REPORT INFORMATION
  Report Type: 
  Country: None (occurrence: None)
  Receive Date: 20070110
  Receipt Date: 20061019
  Transmission Date: 20070707
  Serious: No
  Sender: FDA-Public Use
  Company Number: US-BRISTOL-MYERS SQUIBB COMPANY-13547344

PATIENT
  Age: 49 Year
  Sex: Male
  Weight: 79 kg

DRUGS (3)
  1. ABILIFY [Suspect]
     Indication: BIPOLAR I DISORDER
     Dosage: 19-SEP-2006 2.5 MG DAILY; 26-SEP-2006 5 MG DAILY; 02-OCT-2006 10 MG; 05-OCT-2006 15 MG
     Dates: start: 20060919, end: 20061017
  2. GEMFIBROZIL [Concomitant]
  3. ZYRTEC [Concomitant]

REACTIONS (2)
  - FOOD CRAVING [None]
  - WEIGHT INCREASED [None]
